FAERS Safety Report 4694016-8 (Version None)
Quarter: 2005Q2

REPORT INFORMATION
  Report Type: 
  Country: None (occurrence: None)
  Receive Date: 20050616
  Receipt Date: 20050614
  Transmission Date: 20051028
  Serious: Yes (Hospitalization)
  Sender: FDA-Public Use
  Company Number: 214363

PATIENT
  Age: 18 Year
  Sex: Male

DRUGS (1)
  1. RAPTIVA [Suspect]
     Indication: PSORIASIS
     Dosage: SUBCUTANEOUS
     Route: 058

REACTIONS (1)
  - GLOMERULONEPHRITIS MEMBRANOPROLIFERATIVE [None]
